FAERS Safety Report 13987707 (Version 1)
Quarter: 2017Q3

REPORT INFORMATION
  Report Type: Spontaneous
  Country: GB (occurrence: GB)
  Receive Date: 20170919
  Receipt Date: 20170919
  Transmission Date: 20171128
  Serious: Yes (Other)
  Sender: FDA-Public Use
  Company Number: GB-PFIZER INC-2017400925

PATIENT
  Age: 23 Year
  Sex: Female
  Weight: 69 kg

DRUGS (9)
  1. FLUCLOXACILLIN [Concomitant]
     Active Substance: FLUCLOXACILLIN
     Dosage: 1 DF, 4X/DAY
     Dates: start: 20170830
  2. CODEINE PHOSPHATE [Concomitant]
     Active Substance: CODEINE PHOSPHATE
     Dosage: UNK, AS NEEDED (TAKE ONE OR TWO 4 TIMES/DAY)
     Dates: start: 20170511, end: 20170830
  3. LANSOPRAZOLE. [Concomitant]
     Active Substance: LANSOPRAZOLE
     Dosage: 1 DF, 1X/DAY (WHILE TAKING NAPROXEN)
     Dates: start: 20170228
  4. PROPRANOLOL [Concomitant]
     Active Substance: PROPRANOLOL HYDROCHLORIDE
     Dosage: 1 DF, 3X/DAY
     Dates: start: 20170504
  5. NAPROXEN. [Concomitant]
     Active Substance: NAPROXEN
     Dosage: 1 DF, 2X/DAY
     Dates: start: 20170228, end: 20170830
  6. GABAPENTIN. [Suspect]
     Active Substance: GABAPENTIN
     Dosage: 100 MG, UNK
     Dates: start: 20170830
  7. NITROFURANTOIN. [Concomitant]
     Active Substance: NITROFURANTOIN
     Dosage: 1 DF, 4X/DAY
     Dates: start: 20170721, end: 20170724
  8. PARACETAMOL [Concomitant]
     Active Substance: ACETAMINOPHEN
     Dosage: UNK (TAKE 1 OR 2 4 TIMES/DAY)
     Dates: start: 20170228
  9. SERTRALINE [Concomitant]
     Active Substance: SERTRALINE HYDROCHLORIDE
     Dosage: 1 DF, 1X/DAY
     Dates: start: 20170830

REACTIONS (3)
  - Somnolence [Unknown]
  - Pharyngeal oedema [Recovered/Resolved]
  - Dizziness [Unknown]
